FAERS Safety Report 15148965 (Version 1)
Quarter: 2018Q3

REPORT INFORMATION
  Report Type: Spontaneous
  Country: US (occurrence: US)
  Receive Date: 20180713
  Receipt Date: 20180713
  Transmission Date: 20181010
  Serious: Yes (Other)
  Sender: FDA-Public Use
  Company Number: None

PATIENT
  Age: 2 Year
  Sex: Male

DRUGS (6)
  1. DIVYA SWARNA VASANT MALTI (HERBALS) [Suspect]
     Active Substance: HERBALS
     Indication: COUGH
     Route: 048
  2. RAS MANIKYA [Concomitant]
     Dates: start: 20180101, end: 20180228
  3. DIVYA SWARNA VASANT MALTI (HERBALS) [Suspect]
     Active Substance: HERBALS
     Indication: DYSPEPSIA
     Route: 048
  4. RAS MANIKYA [Concomitant]
     Dates: start: 20170801, end: 20171031
  5. DIVYA TAMRA BHASMA (COPPER) [Suspect]
     Active Substance: COPPER
     Indication: DYSPEPSIA
     Route: 048
  6. DIVYA TAMRA BHASMA (COPPER) [Suspect]
     Active Substance: COPPER
     Indication: COUGH
     Route: 048

REACTIONS (1)
  - Blood lead increased [None]

NARRATIVE: CASE EVENT DATE: 20180319
